FAERS Safety Report 10392869 (Version 1)
Quarter: 2014Q3

REPORT INFORMATION
  Report Type: Spontaneous
  Country: GB (occurrence: GB)
  Receive Date: 20140819
  Receipt Date: 20140819
  Transmission Date: 20150326
  Serious: Yes (Other)
  Sender: FDA-Public Use
  Company Number: GB-009507513-1408GBR008854

PATIENT
  Age: 70 Year
  Sex: Male
  Weight: 84 kg

DRUGS (13)
  1. SIMVASTATIN. [Suspect]
     Active Substance: SIMVASTATIN
     Indication: BLOOD CHOLESTEROL INCREASED
     Route: 048
  2. BIMATOPROST [Concomitant]
     Active Substance: BIMATOPROST
  3. TADALAFIL [Concomitant]
     Active Substance: TADALAFIL
  4. OMEGA-3 ACIDS [Concomitant]
     Active Substance: OMEGA-3 FATTY ACIDS
  5. LANTUS [Concomitant]
     Active Substance: INSULIN GLARGINE
  6. NOVORAPID [Concomitant]
     Active Substance: INSULIN ASPART
  7. UBIDECARENONE [Concomitant]
     Active Substance: UBIDECARENONE
  8. ZINC (UNSPECIFIED) [Concomitant]
  9. ATORVASTATIN [Suspect]
     Active Substance: ATORVASTATIN
     Indication: BLOOD CHOLESTEROL INCREASED
  10. RAMIPRIL. [Concomitant]
     Active Substance: RAMIPRIL
  11. LANSOPRAZOLE. [Concomitant]
     Active Substance: LANSOPRAZOLE
  12. ALBUTEROL. [Concomitant]
     Active Substance: ALBUTEROL
  13. BECLOMETHASONE DIPROPIONATE [Concomitant]
     Active Substance: BECLOMETHASONE DIPROPIONATE

REACTIONS (4)
  - Myalgia [Recovered/Resolved]
  - Headache [Recovered/Resolved]
  - Nausea [Recovered/Resolved]
  - Eructation [Recovered/Resolved]

NARRATIVE: CASE EVENT DATE: 20120707
